FAERS Safety Report 12218172 (Version 1)
Quarter: 2016Q1

REPORT INFORMATION
  Report Type: Spontaneous
  Country: BR (occurrence: BR)
  Receive Date: 20160329
  Receipt Date: 20160329
  Transmission Date: 20160526
  Serious: Yes (Hospitalization, Other)
  Sender: FDA-Public Use
  Company Number: BR-ASTRAZENECA-2016SE31745

PATIENT
  Age: 68 Year
  Sex: Male
  Weight: 83 kg

DRUGS (4)
  1. FLUTICAPS [Concomitant]
     Indication: ASTHMA
     Route: 055
     Dates: start: 2011
  2. SYMBICORT [Suspect]
     Active Substance: BUDESONIDE\FORMOTEROL FUMARATE DIHYDRATE
     Indication: ASTHMA
     Dosage: 320/9 MCG, TWO TIMES A DAY
     Route: 055
     Dates: start: 2008
  3. SYMBICORT [Suspect]
     Active Substance: BUDESONIDE\FORMOTEROL FUMARATE DIHYDRATE
     Indication: BRONCHITIS
     Dosage: 320/9 MCG, TWO TIMES A DAY
     Route: 055
     Dates: start: 2008
  4. FLUTICAPS [Concomitant]
     Indication: BRONCHITIS
     Route: 055
     Dates: start: 2011

REACTIONS (3)
  - Cough [Not Recovered/Not Resolved]
  - Asthma [Recovered/Resolved]
  - Arterial occlusive disease [Recovered/Resolved]

NARRATIVE: CASE EVENT DATE: 2011
